FAERS Safety Report 8531891-0 (Version None)
Quarter: 2012Q3

REPORT INFORMATION
  Report Type: 
  Country: None (occurrence: None)
  Receive Date: 20120723
  Receipt Date: 20120716
  Transmission Date: 20120928
  Serious: Yes (Other)
  Sender: FDA-Public Use
  Company Number: US-ALLERGAN-1209838US

PATIENT
  Age: 59 Year
  Sex: Female

DRUGS (2)
  1. DEX 0.06MG INS [Suspect]
     Indication: PROCEDURAL PAIN
  2. DEX 0.06MG INS [Suspect]
     Indication: POSTOPERATIVE CARE
     Dosage: 60 A?G, SINGLE
     Route: 031
     Dates: start: 20120702, end: 20120702

REACTIONS (1)
  - CORNEAL OEDEMA [None]
